FAERS Safety Report 4376884-2 (Version None)
Quarter: 2004Q2

REPORT INFORMATION
  Report Type: 
  Country: None (occurrence: None)
  Receive Date: 20040608
  Receipt Date: 20030515
  Transmission Date: 20050107
  Serious: Yes (Other)
  Sender: FDA-Public Use
  Company Number: 200311647BCC

PATIENT
  Age: 53 Year
  Sex: Female
  Weight: 81.6475 kg

DRUGS (2)
  1. ALEVE [Suspect]
     Indication: INTERVERTEBRAL DISC PROTRUSION
     Dosage: 220 MG, BID, ORAL
     Route: 048
     Dates: start: 20030415, end: 20030430
  2. LORVICET [Concomitant]

REACTIONS (1)
  - DYSPNOEA [None]
